FAERS Safety Report 10637804 (Version 1)
Quarter: 2014Q4

REPORT INFORMATION
  Report Type: Spontaneous
  Country: US (occurrence: US)
  Receive Date: 20141208
  Receipt Date: 20141208
  Transmission Date: 20150529
  Serious: No
  Sender: FDA-Public Use
  Company Number: US-009507513-1409USA003311

PATIENT
  Sex: Female

DRUGS (1)
  1. MEXSANA MEDICATED POWDER [Suspect]
     Active Substance: EUCALYPTUS OIL\KAOLIN\STARCH, CORN\ZINC OXIDE
     Indication: PRODUCT USED FOR UNKNOWN INDICATION
     Dosage: UNK, UNKNOWN
     Route: 061

REACTIONS (2)
  - Application site irritation [Unknown]
  - Off label use [Unknown]
